FAERS Safety Report 5719438-5 (Version None)
Quarter: 2008Q2

REPORT INFORMATION
  Report Type: 
  Country: None (occurrence: None)
  Receive Date: 20080428
  Receipt Date: 20080424
  Transmission Date: 20081010
  Serious: Yes (Hospitalization)
  Sender: FDA-Public Use
  Company Number: SE-BRISTOL-MYERS SQUIBB COMPANY-14166169

PATIENT
  Age: 51 Year
  Sex: Female

DRUGS (2)
  1. TAXOL [Suspect]
     Indication: BREAST CANCER
     Dosage: FIRST CYCLE ON 24-OCT-2007 AND THE FOURTH CYCLE ON 02-JAN-2008.
     Route: 042
     Dates: start: 20080102, end: 20080102
  2. AVASTIN [Suspect]
     Indication: BREAST CANCER
     Dosage: 1 DOSAGE FORM = 25MG/ML,FIRST CYCLE ON 24-OCT-2007 AND THE FOURTH CYCLE ON 02-JAN-2008.
     Route: 042
     Dates: start: 20080102, end: 20080102

REACTIONS (2)
  - CARDIOMYOPATHY [None]
  - NASOPHARYNGITIS [None]
